FAERS Safety Report 19653700 (Version 1)
Quarter: 2021Q3

REPORT INFORMATION
  Report Type: Spontaneous
  Country: US (occurrence: US)
  Receive Date: 20210803
  Receipt Date: 20210803
  Transmission Date: 20211014
  Serious: No
  Sender: FDA-Public Use
  Company Number: US-PFIZER INC-2021753836

PATIENT
  Age: 62 Year
  Sex: Female

DRUGS (1)
  1. XELJANZ XR [Suspect]
     Active Substance: TOFACITINIB CITRATE
     Indication: RHEUMATOID ARTHRITIS
     Dosage: 11 MG, DAILY
     Route: 048
     Dates: start: 2018

REACTIONS (9)
  - Pain [Unknown]
  - Palpitations [Unknown]
  - Back pain [Unknown]
  - Drug effect less than expected [Unknown]
  - Musculoskeletal stiffness [Unknown]
  - Gastric disorder [Unknown]
  - Asthenia [Unknown]
  - Muscular weakness [Unknown]
  - Neck pain [Unknown]
